FAERS Safety Report 6937422-0 (Version None)
Quarter: 2010Q3

REPORT INFORMATION
  Report Type: 
  Country: None (occurrence: None)
  Receive Date: 20100823
  Receipt Date: 20100813
  Transmission Date: 20110219
  Serious: No
  Sender: FDA-Public Use
  Company Number: US-US-EMD SERONO, INC.-7012437

PATIENT
  Sex: Female
  Weight: 63 kg

DRUGS (3)
  1. REBIF [Suspect]
     Indication: RELAPSING-REMITTING MULTIPLE SCLEROSIS
     Route: 058
     Dates: start: 20081206
  2. CELEXA [Suspect]
     Indication: DEPRESSION
     Route: 048
     Dates: start: 20100501, end: 20100701
  3. CELEXA [Suspect]
     Route: 048
     Dates: start: 20100101

REACTIONS (6)
  - DELUSION [None]
  - HALLUCINATION, AUDITORY [None]
  - HEADACHE [None]
  - MENORRHAGIA [None]
  - MULTIPLE SCLEROSIS RELAPSE [None]
  - SUICIDAL IDEATION [None]
